FAERS Safety Report 8304038-3 (Version None)
Quarter: 2012Q2

REPORT INFORMATION
  Report Type: 
  Country: None (occurrence: None)
  Receive Date: 20120418
  Receipt Date: 20110901
  Transmission Date: 20120825
  Serious: No
  Sender: FDA-Public Use
  Company Number: AEUSA201100234

PATIENT
  Age: 58 Year
  Sex: Male
  Weight: 100.4717 kg

DRUGS (12)
  1. SINGULAIR [Concomitant]
  2. PROLASTIN-C [Suspect]
     Indication: ALPHA-1 ANTI-TRYPSIN DEFICIENCY
     Dosage: QOW;IV
     Route: 042
     Dates: start: 20100701
  3. HYDROCHLOROTHIAZIDE [Concomitant]
  4. SIMVASTATIN [Concomitant]
  5. FLUTICASONE FUROATE [Concomitant]
  6. TIOTROPIUM [Concomitant]
  7. LISINOPRIL [Concomitant]
  8. SYMBICORT [Concomitant]
  9. OMEPRAZOLE [Concomitant]
  10. VITAMIN TAB [Concomitant]
  11. FORADIL [Concomitant]
  12. ALBUTEROL [Concomitant]

REACTIONS (9)
  - EMPHYSEMA [None]
  - SINUSITIS [None]
  - MYALGIA [None]
  - ATELECTASIS [None]
  - SINUS HEADACHE [None]
  - VOMITING [None]
  - DIZZINESS [None]
  - SINUS CONGESTION [None]
  - COUGH [None]
